FAERS Safety Report 5117269-0 (Version None)
Quarter: 2006Q3

REPORT INFORMATION
  Report Type: 
  Country: None (occurrence: None)
  Receive Date: 20060929
  Receipt Date: 20060918
  Transmission Date: 20061208
  Serious: Yes (Life-Threatening)
  Sender: FDA-Public Use
  Company Number: US-KINGPHARMUSA00001-K200601187

PATIENT
  Sex: Female

DRUGS (4)
  1. SONATA [Suspect]
     Indication: SLEEP DISORDER
     Dosage: 10 MG, QD
     Route: 048
  2. ATIVAN [Suspect]
     Indication: SLEEP DISORDER
     Dosage: 1 MG, QD
     Route: 048
  3. VERSED [Suspect]
     Indication: PAIN
  4. DEMEROL [Suspect]
     Indication: PAIN

REACTIONS (5)
  - CIRCULATORY COLLAPSE [None]
  - CYANOSIS [None]
  - DRUG INTERACTION [None]
  - PULSE ABSENT [None]
  - RESPIRATORY ARREST [None]
